FAERS Safety Report 10050930 (Version 1)
Quarter: 2014Q2

REPORT INFORMATION
  Report Type: Spontaneous
  Country: CH (occurrence: CH)
  Receive Date: 20140401
  Receipt Date: 20140401
  Transmission Date: 20141212
  Serious: Yes (Other)
  Sender: FDA-Public Use
  Company Number: CH-JNJFOC-20140313014

PATIENT
  Age: 28 Year
  Sex: Male

DRUGS (9)
  1. INTELENCE [Suspect]
     Indication: HIV CARRIER
     Route: 048
     Dates: start: 20090501
  2. COMBIVIR [Suspect]
     Indication: HIV CARRIER
     Route: 048
     Dates: start: 20021112, end: 20051107
  3. KALETRA [Suspect]
     Indication: HIV CARRIER
     Route: 048
     Dates: start: 20060125, end: 20061204
  4. EFAVIRENZ [Suspect]
     Indication: PRODUCT USED FOR UNKNOWN INDICATION
     Route: 048
     Dates: start: 20021112, end: 20051107
  5. KIVEXA [Suspect]
     Indication: HIV CARRIER
     Route: 048
     Dates: start: 20061204
  6. CO-LISINOPRIL [Concomitant]
     Indication: PRODUCT USED FOR UNKNOWN INDICATION
     Route: 048
     Dates: start: 20050501
  7. ALDOZONE [Concomitant]
     Indication: PRODUCT USED FOR UNKNOWN INDICATION
     Route: 065
     Dates: start: 200511
  8. AMLODIPINE [Concomitant]
     Indication: PRODUCT USED FOR UNKNOWN INDICATION
     Route: 065
     Dates: start: 2007, end: 2009
  9. TENORETIC [Concomitant]
     Indication: PRODUCT USED FOR UNKNOWN INDICATION
     Route: 065
     Dates: start: 2010

REACTIONS (4)
  - Blood creatine phosphokinase abnormal [Not Recovered/Not Resolved]
  - Amylase abnormal [Recovered/Resolved]
  - Hypertransaminasaemia [Not Recovered/Not Resolved]
  - Liver function test abnormal [Unknown]
